FAERS Safety Report 23758413 (Version 3)
Quarter: 2024Q4

REPORT INFORMATION
  Report Type: Report from Study
  Country: GB (occurrence: GB)
  Receive Date: 20240418
  Receipt Date: 20241106
  Transmission Date: 20250115
  Serious: Yes (Other)
  Sender: TEVA
  Company Number: GB-TEVA-VS-3182584

PATIENT
  Age: 60 Year
  Sex: Female

DRUGS (1)
  1. AJOVY [Suspect]
     Active Substance: FREMANEZUMAB-VFRM
     Indication: Migraine
     Dosage: FORM STRENGTH: 225MG/1.5ML
     Route: 058
     Dates: start: 20240329

REACTIONS (9)
  - Hypotension [Unknown]
  - Extrasystoles [Unknown]
  - Peripheral coldness [Unknown]
  - Dizziness [Unknown]
  - Palpitations [Unknown]
  - Formication [Unknown]
  - Head discomfort [Unknown]
  - Pruritus [Unknown]
  - Feeling abnormal [Unknown]

NARRATIVE: CASE EVENT DATE: 20240329
